FAERS Safety Report 20796036 (Version 2)
Quarter: 2023Q1

REPORT INFORMATION
  Report Type: Spontaneous
  Country: US (occurrence: US)
  Receive Date: 20220506
  Receipt Date: 20230112
  Transmission Date: 20230417
  Serious: Yes (Hospitalization, Other)
  Sender: FDA-Public Use
  Company Number: US-PFIZER INC-2020518238

PATIENT
  Age: 66 Year
  Sex: Male
  Weight: 67.77 kg

DRUGS (4)
  1. VFEND [Suspect]
     Active Substance: VORICONAZOLE
     Indication: Lung transplant
     Dosage: 50 MG
  2. VFEND [Suspect]
     Active Substance: VORICONAZOLE
     Indication: Liver transplant
     Dosage: 150 MG, 2X/DAY(150 MG Q12H(EVERY 12 HR))
     Route: 048
     Dates: start: 202011
  3. VFEND [Suspect]
     Active Substance: VORICONAZOLE
     Dosage: 250 MG, 2X/DAY
     Route: 048
  4. PREDNISONE [Concomitant]
     Active Substance: PREDNISONE
     Dosage: UNK

REACTIONS (7)
  - Dyspnoea [Unknown]
  - Pneumonia [Unknown]
  - Tracheal stenosis [Unknown]
  - Pseudomonas infection [Unknown]
  - Off label use [Unknown]
  - Drug level below therapeutic [Unknown]
  - Aspergillus test positive [Unknown]

NARRATIVE: CASE EVENT DATE: 20210224
